FAERS Safety Report 15183846 (Version 1)
Quarter: 2018Q3

REPORT INFORMATION
  Report Type: Spontaneous
  Country: FR (occurrence: FR)
  Receive Date: 20180723
  Receipt Date: 20180723
  Transmission Date: 20181010
  Serious: Yes (Hospitalization)
  Sender: FDA-Public Use
  Company Number: FR-ALLERGAN-1835572US

PATIENT
  Age: 83 Year
  Sex: Female

DRUGS (4)
  1. LAMALINE (ACETAMINOPHEN\BELLADONNA LEAF\CAFFEINE\OPIUM) [Suspect]
     Active Substance: ACETAMINOPHEN\BELLADONNA LEAF\CAFFEINE\OPIUM
     Indication: ARTHRALGIA
     Dosage: UNK UNK, UNKNOWN
     Route: 048
     Dates: end: 20180705
  2. MEMANTINE HCL ? BP [Suspect]
     Active Substance: MEMANTINE
     Indication: DEMENTIA ALZHEIMER^S TYPE
     Dosage: 20 MG, QD
     Route: 048
     Dates: end: 20180605
  3. PAROXETINE HYDROCHLORIDE. [Suspect]
     Active Substance: PAROXETINE HYDROCHLORIDE
     Indication: DEPRESSION
     Dosage: 20 MG, QD
     Route: 048
     Dates: end: 20180605
  4. LYSANXIA [Suspect]
     Active Substance: PRAZEPAM
     Indication: DEPRESSION
     Dosage: 10 MG, QD
     Route: 048
     Dates: end: 20180705

REACTIONS (3)
  - Fall [Recovering/Resolving]
  - Hypokalaemia [Recovered/Resolved]
  - Inappropriate schedule of drug administration [Unknown]

NARRATIVE: CASE EVENT DATE: 20180704
